FAERS Safety Report 6091045-7 (Version None)
Quarter: 2009Q1

REPORT INFORMATION
  Report Type: 
  Country: None (occurrence: None)
  Receive Date: 20090225
  Receipt Date: 20090213
  Transmission Date: 20090719
  Serious: Yes (Death)
  Sender: FDA-Public Use
  Company Number: US-SOLVAY-00209000862

PATIENT
  Age: 40 Year
  Sex: Male

DRUGS (2)
  1. UNKNOWN ANTI-DEPRESSANTS [Concomitant]
     Indication: DEPRESSION
     Dosage: DAILY DOSE:  UNKNOWN
     Route: 048
  2. ANDROGEL [Suspect]
     Indication: BLOOD TESTOSTERONE DECREASED
     Dosage: DAILY DOSE:  UNKNOWN
     Route: 062
     Dates: start: 20090206

REACTIONS (1)
  - COMPLETED SUICIDE [None]
